FAERS Safety Report 4853562-4 (Version None)
Quarter: 2005Q4

REPORT INFORMATION
  Report Type: 
  Country: None (occurrence: None)
  Receive Date: 20051209
  Receipt Date: 20051130
  Transmission Date: 20060501
  Serious: Yes (Death, Hospitalization, Other)
  Sender: FDA-Public Use
  Company Number: 2005153439

PATIENT
  Age: 21 Year
  Sex: Male

DRUGS (7)
  1. GEODON [Suspect]
     Indication: PSYCHOTIC DISORDER
     Dosage: 160 MG
  2. HEROIN (DIAMORPHINE) [Suspect]
     Indication: ILL-DEFINED DISORDER
  3. DEPAKOTE - SLOW RELEASE (VALPROATE SEMISODIUM) [Concomitant]
  4. ZONEGRAN [Concomitant]
  5. ABILIFY [Concomitant]
  6. ZOLOFT [Concomitant]
  7. NALTREXONE HCL [Concomitant]

REACTIONS (6)
  - CARDIOMEGALY [None]
  - DRUG ABUSER [None]
  - DRUG INTERACTION [None]
  - MENTAL IMPAIRMENT [None]
  - OVERDOSE [None]
  - PSYCHOTIC DISORDER [None]
